FAERS Safety Report 8134639-7 (Version None)
Quarter: 2012Q1

REPORT INFORMATION
  Report Type: 
  Country: None (occurrence: None)
  Receive Date: 20120214
  Receipt Date: 20120209
  Transmission Date: 20120608
  Serious: Yes (Death, Hospitalization)
  Sender: FDA-Public Use
  Company Number: US-ASTELLAS-2011US007319

PATIENT
  Sex: Male

DRUGS (1)
  1. ERLOTINIB HYDROCHLORIDE [Suspect]
     Indication: PANCREATIC CARCINOMA
     Dosage: 100 MG, UID/QD
     Route: 048
     Dates: start: 20111028, end: 20111101

REACTIONS (6)
  - MALIGNANT PLEURAL EFFUSION [None]
  - NEOPLASM MALIGNANT [None]
  - MALIGNANT ASCITES [None]
  - RASH [None]
  - EMPYEMA [None]
  - INTESTINAL OBSTRUCTION [None]
